FAERS Safety Report 11118215 (Version 1)
Quarter: 2015Q2

REPORT INFORMATION
  Report Type: Spontaneous
  Country: US (occurrence: US)
  Receive Date: 20150518
  Receipt Date: 20150518
  Transmission Date: 20150821
  Serious: No
  Sender: FDA-Public Use
  Company Number: US-TEVA-557954USA

PATIENT
  Age: 56 Year
  Sex: Female
  Weight: 54.48 kg

DRUGS (6)
  1. KLONOPIN [Concomitant]
     Active Substance: CLONAZEPAM
     Indication: ANXIETY DISORDER
  2. ELAVIL [Concomitant]
     Active Substance: AMITRIPTYLINE HYDROCHLORIDE
     Indication: NEUROPATHY PERIPHERAL
  3. FENTORA [Suspect]
     Active Substance: FENTANYL CITRATE
     Dosage: 3600 MICROGRAM DAILY;
     Route: 002
     Dates: start: 20150321, end: 20150409
  4. DILAUDID [Concomitant]
     Active Substance: HYDROMORPHONE HYDROCHLORIDE
     Indication: RECTAL CANCER
  5. FENTANYL. [Suspect]
     Active Substance: FENTANYL
     Indication: RECTAL CANCER
     Route: 062
     Dates: start: 20150409
  6. FENTORA [Suspect]
     Active Substance: FENTANYL CITRATE
     Indication: CANCER PAIN
     Dosage: 4800 MICROGRAM DAILY;
     Route: 002
     Dates: start: 2013, end: 20150321

REACTIONS (5)
  - Tremor [Recovered/Resolved]
  - Hyperhidrosis [Recovered/Resolved]
  - Drug withdrawal syndrome [Not Recovered/Not Resolved]
  - Pain [Not Recovered/Not Resolved]
  - Back pain [Not Recovered/Not Resolved]

NARRATIVE: CASE EVENT DATE: 2013
